FAERS Safety Report 6200526-4 (Version None)
Quarter: 2009Q2

REPORT INFORMATION
  Report Type: 
  Country: None (occurrence: None)
  Receive Date: 20090522
  Receipt Date: 20090520
  Transmission Date: 20091009
  Serious: Yes (Hospitalization)
  Sender: FDA-Public Use
  Company Number: KR-B.I. PHARMACEUTICALS,INC./RIDGEFIELD-2009-BP-04814BP

PATIENT
  Sex: Female
  Weight: 53.7 kg

DRUGS (9)
  1. BLIND (DABIGATRAN) [Suspect]
     Indication: THROMBOSIS PROPHYLAXIS
     Route: 048
  2. BLIND (DABIGATRAN) [Suspect]
  3. MADOPAR [Suspect]
     Indication: PARKINSON'S DISEASE
     Dosage: 125MG
     Route: 048
     Dates: start: 20060719
  4. PARKIN [Suspect]
     Indication: PARKINSON'S DISEASE
     Route: 048
     Dates: start: 20070829
  5. PARLODEL [Suspect]
     Indication: PARKINSON'S DISEASE
     Dosage: 11.25MG
     Route: 048
     Dates: start: 20070627
  6. TAMSULOSIN HCL [Suspect]
     Indication: PARKINSON'S DISEASE
     Dosage: .4MG
     Route: 048
     Dates: start: 20080829
  7. ZOLPIDEM [Suspect]
     Indication: PARKINSON'S DISEASE
     Dosage: 10MG
     Route: 048
     Dates: start: 20080109
  8. GASMOTIN [Concomitant]
     Indication: PARKINSON'S DISEASE
     Dosage: 15MG
     Route: 048
     Dates: start: 20031117
  9. CACO3 [Concomitant]
     Indication: PARKINSON'S DISEASE
     Dosage: 1500MG
     Route: 048
     Dates: start: 20080829

REACTIONS (2)
  - GASTRITIS [None]
  - OSTEOARTHRITIS [None]
